FAERS Safety Report 5082003-X (Version None)
Quarter: 2006Q3

REPORT INFORMATION
  Report Type: 
  Country: None (occurrence: None)
  Receive Date: 20060811
  Receipt Date: 20060802
  Transmission Date: 20061208
  Serious: Yes (Other)
  Sender: FDA-Public Use
  Company Number: 2006095106

PATIENT
  Age: 38 Year
  Sex: Female

DRUGS (1)
  1. FRAGMIN [Suspect]
     Indication: HYPERCOAGULATION
     Dates: start: 20050101

REACTIONS (4)
  - ABORTION [None]
  - DRUG EXPOSURE DURING PREGNANCY [None]
  - NERVOUSNESS [None]
  - PREGNANCY [None]
